FAERS Safety Report 9632826 (Version 1)
Quarter: 2013Q4

REPORT INFORMATION
  Report Type: Spontaneous
  Country: US (occurrence: US)
  Receive Date: 20131018
  Receipt Date: 20131018
  Transmission Date: 20140711
  Serious: No
  Sender: FDA-Public Use
  Company Number: US-009507513-1310USA002363

PATIENT
  Sex: Female

DRUGS (3)
  1. ZETIA [Suspect]
     Indication: BLOOD CHOLESTEROL INCREASED
     Dosage: 10 MG, QD
     Route: 048
  2. ATORVASTATIN [Suspect]
     Dosage: 80 MG, QD
  3. ATORVASTATIN [Suspect]
     Dosage: 40 MG, QD

REACTIONS (1)
  - Musculoskeletal pain [Recovered/Resolved]
